FAERS Safety Report 13835538 (Version 1)
Quarter: 2017Q3

REPORT INFORMATION
  Report Type: Spontaneous
  Country: US (occurrence: US)
  Receive Date: 20170804
  Receipt Date: 20170804
  Transmission Date: 20171127
  Serious: Yes (Other)
  Sender: FDA-Public Use
  Company Number: US-TEVA-794110USA

PATIENT
  Age: 46 Year
  Sex: Female

DRUGS (5)
  1. MYCOPHENOLATE MOFETIL. [Suspect]
     Active Substance: MYCOPHENOLATE MOFETIL
     Indication: IDIOPATHIC ORBITAL INFLAMMATION
     Route: 048
  2. METHOTREXATE. [Suspect]
     Active Substance: METHOTREXATE
     Indication: IDIOPATHIC ORBITAL INFLAMMATION
     Route: 048
  3. PREDNISONE. [Suspect]
     Active Substance: PREDNISONE
     Indication: IDIOPATHIC ORBITAL INFLAMMATION
     Dosage: 60MG
     Route: 048
  4. DAPSONE. [Suspect]
     Active Substance: DAPSONE
     Indication: POLYCHONDRITIS
     Route: 065
  5. ADALIMUMAB [Suspect]
     Active Substance: ADALIMUMAB
     Indication: IDIOPATHIC ORBITAL INFLAMMATION
     Route: 048

REACTIONS (5)
  - Gastrooesophageal reflux disease [Unknown]
  - Non-alcoholic fatty liver [Unknown]
  - Weight increased [Unknown]
  - Diabetes mellitus [Unknown]
  - Hypertension [Unknown]
